FAERS Safety Report 8841009 (Version 1)
Quarter: 2012Q4

REPORT INFORMATION
  Report Type: 
  Country: US (occurrence: US)
  Receive Date: 20121015
  Receipt Date: 20121015
  Transmission Date: 20130627
  Serious: Yes (Other)
  Sender: FDA-Public Use
  Company Number: US-ROCHE-1139801

PATIENT
  Sex: Female

DRUGS (1)
  1. PROTROPIN [Suspect]
     Indication: DWARFISM
     Route: 058
     Dates: start: 19921013

REACTIONS (4)
  - Varicella [Unknown]
  - Malaise [Unknown]
  - Drug dose omission [Unknown]
  - Decreased appetite [Unknown]
